FAERS Safety Report 10576316 (Version 3)
Quarter: 2015Q2

REPORT INFORMATION
  Report Type: Report from Study
  Country: US (occurrence: US)
  Receive Date: 20141111
  Receipt Date: 20150413
  Transmission Date: 20150821
  Serious: Yes (Hospitalization)
  Sender: FDA-Public Use
  Company Number: US-SA-2014SA154334

PATIENT
  Age: 49 Year
  Sex: Male
  Weight: 120.2 kg

DRUGS (1)
  1. LUMIZYME [Suspect]
     Active Substance: ALGLUCOSIDASE ALFA
     Indication: GLYCOGEN STORAGE DISEASE TYPE II
     Dosage: 2000 MG
     Route: 041
     Dates: start: 20130930

REACTIONS (2)
  - Pneumonia [Not Recovered/Not Resolved]
  - Pneumothorax [Recovering/Resolving]
